FAERS Safety Report 24531426 (Version 1)
Quarter: 2024Q4

REPORT INFORMATION
  Report Type: Report from Study
  Country: US (occurrence: US)
  Receive Date: 20241022
  Receipt Date: 20241022
  Transmission Date: 20250114
  Serious: No
  Sender: ROCHE
  Company Number: US-ROCHE-2923864

PATIENT
  Age: 20 Year
  Sex: Female

DRUGS (4)
  1. PULMOZYME [Suspect]
     Active Substance: DORNASE ALFA
     Indication: Bronchiectasis
     Dosage: USE 1 AMPULE ONCE DAILY?1 VIAL/2.5ML
     Route: 045
  2. PULMOZYME [Suspect]
     Active Substance: DORNASE ALFA
     Indication: Aspergillus infection
     Dosage: STRENGTH: 2.5MG/2.5ML
     Route: 050
     Dates: start: 20240124
  3. PULMOZYME [Suspect]
     Active Substance: DORNASE ALFA
     Indication: Asthma
  4. PULMOZYME [Suspect]
     Active Substance: DORNASE ALFA
     Indication: Respiratory tract malformation

REACTIONS (2)
  - Off label use [Unknown]
  - No adverse event [Unknown]
